FAERS Safety Report 4379593-9 (Version None)
Quarter: 2004Q2

REPORT INFORMATION
  Report Type: 
  Country: None (occurrence: None)
  Receive Date: 20040427
  Receipt Date: 20040311
  Transmission Date: 20050107
  Serious: Yes (Other)
  Sender: FDA-Public Use
  Company Number: 361664

PATIENT
  Sex: Female

DRUGS (2)
  1. VALCYTE [Suspect]
     Indication: LIVER TRANSPLANT
     Dates: start: 20030615
  2. VALCYTE [Suspect]
     Indication: RENAL TRANSPLANT
     Dates: start: 20030615

REACTIONS (2)
  - HEADACHE [None]
  - VISION BLURRED [None]
